FAERS Safety Report 20134795 (Version 2)
Quarter: 2022Q2

REPORT INFORMATION
  Report Type: Report from Study
  Country: US (occurrence: US)
  Receive Date: 20211201
  Receipt Date: 20220628
  Transmission Date: 20220720
  Serious: Yes (Life-Threatening, Other)
  Sender: FDA-Public Use
  Company Number: US-RECORDATI-2021004635

PATIENT

DRUGS (17)
  1. ISTURISA [Suspect]
     Active Substance: OSILODROSTAT PHOSPHATE
     Indication: Pituitary-dependent Cushing^s syndrome
     Dosage: THREE 1 MILLIGRAM TABLETS TWICE A DAY
     Route: 048
     Dates: start: 20210922, end: 202110
  2. ISTURISA [Suspect]
     Active Substance: OSILODROSTAT PHOSPHATE
     Dosage: 2 MILLIGRAM, BID
     Route: 048
     Dates: start: 20210928, end: 202110
  3. ISTURISA [Suspect]
     Active Substance: OSILODROSTAT PHOSPHATE
     Dosage: 3 MILLIGRAM, BID
     Route: 048
     Dates: start: 20211020, end: 20211104
  4. ISTURISA [Suspect]
     Active Substance: OSILODROSTAT PHOSPHATE
     Dosage: 3 PILLS PER A DAY OF UNKNOWN STRENGTH
     Route: 048
  5. ISTURISA [Suspect]
     Active Substance: OSILODROSTAT PHOSPHATE
     Dosage: 1 MG IN THE MORNING AND AT NIGHT
     Route: 048
  6. ISTURISA [Suspect]
     Active Substance: OSILODROSTAT PHOSPHATE
     Dosage: 2 MG IN THE MORNING AND 1 MG AT NIGHT
     Route: 048
     Dates: start: 202205
  7. COREG [Concomitant]
     Active Substance: CARVEDILOL
     Indication: Hypertension
     Dosage: 25 MILLIGRAM
  8. JARDIANCE [Concomitant]
     Active Substance: EMPAGLIFLOZIN
     Indication: Diabetes mellitus
     Dosage: 25 MILLIGRAM
     Dates: start: 20211104
  9. NIFEDIPINE [Concomitant]
     Active Substance: NIFEDIPINE
     Indication: Angina pectoris
     Dosage: 60 MILLIGRAM
  10. LIPITOR [Concomitant]
     Active Substance: ATORVASTATIN CALCIUM
     Indication: Blood cholesterol increased
     Dosage: 40 MILLIGRAM
  11. LANTUS [Concomitant]
     Active Substance: INSULIN GLARGINE
     Indication: Diabetes mellitus
  12. HUMALOG [Concomitant]
     Active Substance: INSULIN LISPRO
     Indication: Diabetes mellitus
  13. ENALAPRIL [Concomitant]
     Active Substance: ENALAPRIL
     Indication: Product used for unknown indication
  14. LASIX [Concomitant]
     Active Substance: FUROSEMIDE
     Indication: Product used for unknown indication
     Dosage: 20 MILLIGRAM
     Dates: start: 20211104
  15. METFORMIN [Concomitant]
     Active Substance: METFORMIN HYDROCHLORIDE
     Indication: Diabetes mellitus
  16. ATORVASTATIN [Concomitant]
     Active Substance: ATORVASTATIN
     Indication: Blood cholesterol increased
     Dosage: 40 MILLIGRAM
  17. HYDROCHLOROTHIAZIDE [Concomitant]
     Active Substance: HYDROCHLOROTHIAZIDE
     Indication: Product used for unknown indication

REACTIONS (18)
  - Cerebrovascular accident [Recovered/Resolved with Sequelae]
  - Adrenal insufficiency [Recovered/Resolved]
  - Asthenia [Recovered/Resolved]
  - Arthralgia [Recovered/Resolved]
  - Myalgia [Recovered/Resolved]
  - Oral pain [Recovered/Resolved]
  - Gingival pain [Recovered/Resolved]
  - Blood pressure decreased [Recovered/Resolved]
  - Dyspnoea [Recovered/Resolved]
  - Presyncope [Recovered/Resolved]
  - Fatigue [Recovered/Resolved]
  - Nausea [Recovered/Resolved]
  - Headache [Recovered/Resolved]
  - Decreased appetite [Recovered/Resolved]
  - Fatigue [Recovered/Resolved]
  - Dizziness [Recovered/Resolved]
  - Off label use [Recovered/Resolved]
  - Off label use [Recovered/Resolved]

NARRATIVE: CASE EVENT DATE: 20210101
